FAERS Safety Report 6692552-6 (Version None)
Quarter: 2010Q2

REPORT INFORMATION
  Report Type: 
  Country: None (occurrence: None)
  Receive Date: 20100422
  Receipt Date: 20100412
  Transmission Date: 20101027
  Serious: Yes (Hospitalization, Other)
  Sender: FDA-Public Use
  Company Number: FR-GENZYME-THYM-1001376

PATIENT
  Sex: Male

DRUGS (8)
  1. THYMOGLOBULIN [Suspect]
     Indication: ACUTE GRAFT VERSUS HOST DISEASE
     Dosage: 2.5 MG/KG, QD
     Route: 042
     Dates: start: 20091125, end: 20091201
  2. ASPEGIC 1000 [Concomitant]
     Indication: BRADYCARDIA
     Dosage: 250 MG, QD
     Dates: start: 20091130
  3. LOPERAMIDE HYDROCHLORIDE [Concomitant]
     Indication: FUNGAL INFECTION
     Dosage: UNK
     Dates: start: 20091129, end: 20091129
  4. LOVENOX [Concomitant]
     Indication: THROMBOSIS PROPHYLAXIS
     Dosage: 0.4 ML, QD
     Dates: start: 20091130
  5. TAVANIC [Concomitant]
     Indication: DRUG USE FOR UNKNOWN INDICATION
     Dosage: 500 MG, QD
  6. TAZOCILLINE [Concomitant]
     Indication: DRUG USE FOR UNKNOWN INDICATION
     Dosage: 4 G, TID
  7. BACTRIM [Concomitant]
     Indication: DRUG USE FOR UNKNOWN INDICATION
     Dosage: 400 MG, BID
     Dates: start: 20091128, end: 20100103
  8. CYCLOSPORINE [Concomitant]
     Indication: PROPHYLAXIS AGAINST GRAFT VERSUS HOST DISEASE
     Dosage: 100 MG, TID

REACTIONS (3)
  - BK VIRUS INFECTION [None]
  - MYOCARDIAL INFARCTION [None]
  - URINARY TRACT INFECTION [None]
